FAERS Safety Report 7811737-6 (Version None)
Quarter: 2011Q4

REPORT INFORMATION
  Report Type: 
  Country: None (occurrence: None)
  Receive Date: 20111013
  Receipt Date: 20111007
  Transmission Date: 20120403
  Serious: No
  Sender: FDA-Public Use
  Company Number: US-B.I. PHARMACEUTICALS,INC./RIDGEFIELD-2011-BP-21228BP

PATIENT
  Sex: Male

DRUGS (5)
  1. PRADAXA [Suspect]
     Indication: ATRIAL FIBRILLATION
     Dosage: 300 MG
     Dates: start: 20110701
  2. TAMSULOSIN HCL [Concomitant]
  3. LANOXIN [Concomitant]
  4. AVALIDE [Concomitant]
  5. VYTORIN [Concomitant]

REACTIONS (2)
  - WEIGHT DECREASED [None]
  - ENERGY INCREASED [None]
